FAERS Safety Report 21849315 (Version 2)
Quarter: 2023Q1

REPORT INFORMATION
  Report Type: Spontaneous
  Country: US (occurrence: US)
  Receive Date: 20230111
  Receipt Date: 20230227
  Transmission Date: 20230418
  Serious: Yes (Hospitalization, Other)
  Sender: FDA-Public Use
  Company Number: US-PFIZER INC-202300011786

PATIENT
  Age: 70 Year
  Sex: Male
  Weight: 82.1 kg

DRUGS (2)
  1. VYNDAMAX [Suspect]
     Active Substance: TAFAMIDIS
     Indication: Cardiac amyloidosis
     Dosage: 61 MG, 1X/DAY, (61MG CAPSULE BY MOUTH ONCE A DAY)
     Route: 048
     Dates: start: 20220410
  2. VYNDAMAX [Suspect]
     Active Substance: TAFAMIDIS
     Indication: Arrhythmia

REACTIONS (2)
  - Cardiac amyloidosis [Unknown]
  - Condition aggravated [Unknown]

NARRATIVE: CASE EVENT DATE: 20220410
